FAERS Safety Report 11053188 (Version 2)
Quarter: 2015Q2

REPORT INFORMATION
  Report Type: Spontaneous
  Country: US (occurrence: US)
  Receive Date: 20150421
  Receipt Date: 20150430
  Transmission Date: 20150821
  Serious: No
  Sender: FDA-Public Use
  Company Number: US-BAYER-2015-157319

PATIENT
  Sex: Male

DRUGS (1)
  1. MIRALAX [Suspect]
     Active Substance: POLYETHYLENE GLYCOL 3350
     Dosage: 1 U, PRN
     Route: 048
     Dates: start: 20150406

REACTIONS (2)
  - Expired product administered [None]
  - Medication error [Unknown]

NARRATIVE: CASE EVENT DATE: 20150406
